FAERS Safety Report 23843596 (Version 1)
Quarter: 2024Q2

REPORT INFORMATION
  Report Type: Spontaneous
  Country: US (occurrence: US)
  Receive Date: 20240510
  Receipt Date: 20240510
  Transmission Date: 20240716
  Serious: Yes (Other)
  Sender: FDA-Public Use
  Company Number: US-JNJFOC-20240523305

PATIENT
  Sex: Female

DRUGS (1)
  1. TALQUETAMAB [Suspect]
     Active Substance: TALQUETAMAB
     Indication: Product used for unknown indication
     Route: 065

REACTIONS (13)
  - Neuropathy peripheral [Unknown]
  - Clavicle fracture [Unknown]
  - Ageusia [Recovering/Resolving]
  - Amnesia [Not Recovered/Not Resolved]
  - Balance disorder [Unknown]
  - Fatigue [Not Recovered/Not Resolved]
  - Pain [Not Recovered/Not Resolved]
  - Bone lesion [Unknown]
  - Diarrhoea [Recovering/Resolving]
  - Stomatitis [Recovering/Resolving]
  - Skin exfoliation [Unknown]
  - Weight increased [Unknown]
  - Back pain [Unknown]
